FAERS Safety Report 4716112-9 (Version None)
Quarter: 2005Q3

REPORT INFORMATION
  Report Type: 
  Country: None (occurrence: None)
  Receive Date: 20050712
  Receipt Date: 20050119
  Transmission Date: 20060218
  Serious: Yes (Hospitalization)
  Sender: FDA-Public Use
  Company Number: M-05-026

PATIENT
  Age: 65 Year
  Sex: Male

DRUGS (8)
  1. AMIODARONE HCL [Suspect]
     Dosage: UNK MG
     Dates: start: 20040326, end: 20040701
  2. FOLIC ACID [Concomitant]
  3. CONTIN [Concomitant]
  4. VITAMIN B-12 [Concomitant]
  5. DEXAMETHASONE [Concomitant]
  6. METOPROLOL [Concomitant]
  7. DOXAZOSIN MESYLATE [Concomitant]
  8. QUINAPRIL [Concomitant]

REACTIONS (2)
  - PNEUMONITIS [None]
  - PULMONARY TOXICITY [None]
